FAERS Safety Report 14410210 (Version 2)
Quarter: 2018Q1

REPORT INFORMATION
  Report Type: Spontaneous
  Country: FR (occurrence: FR)
  Receive Date: 20180119
  Receipt Date: 20180119
  Transmission Date: 20180509
  Serious: Yes (Other)
  Sender: FDA-Public Use
  Company Number: FR-JNJFOC-20180106860

PATIENT
  Age: 65 Year
  Sex: Female

DRUGS (3)
  1. IBUPROFENE [Suspect]
     Active Substance: IBUPROFEN
     Indication: TOOTH ABSCESS
     Dosage: ONCE IN TOTAL
     Route: 048
     Dates: start: 20171215
  2. IBUPROFENE [Suspect]
     Active Substance: IBUPROFEN
     Route: 048
  3. AMOXICILLIN TRIHYDRATE AND POTASSIUM CLAVULAN [Suspect]
     Active Substance: AMOXICILLIN\CLAVULANATE POTASSIUM
     Indication: TOOTH ABSCESS
     Dosage: ONCE IN TOTAL
     Route: 048
     Dates: start: 20171215

REACTIONS (4)
  - Formication [Recovered/Resolved]
  - Hot flush [Recovered/Resolved]
  - Swelling face [Recovered/Resolved]
  - Palpitations [Recovered/Resolved]

NARRATIVE: CASE EVENT DATE: 20171215
